FAERS Safety Report 9846259 (Version 1)
Quarter: 2014Q1

REPORT INFORMATION
  Report Type: Spontaneous
  Country: AU (occurrence: AU)
  Receive Date: 20140127
  Receipt Date: 20140127
  Transmission Date: 20141002
  Serious: Yes (Other)
  Sender: FDA-Public Use
  Company Number: PHHY2014AU005717

PATIENT
  Sex: Male

DRUGS (4)
  1. CERTICAN [Suspect]
     Dosage: UNK UKN, UNK
  2. PREDNISOLONE [Suspect]
     Dosage: UNK UKN, UNK
  3. METOPROLOL [Suspect]
     Dosage: UNK UKN, UNK
  4. NEXIUM//ESOMEPRAZOLE MAGNESIUM [Suspect]
     Dosage: UNK UKN, UNK

REACTIONS (6)
  - Non-Hodgkin^s lymphoma [Unknown]
  - Eye pain [Unknown]
  - Limb discomfort [Unknown]
  - Pruritus [Unknown]
  - Vision blurred [Unknown]
  - Abdominal pain [Unknown]
